FAERS Safety Report 13586017 (Version 1)
Quarter: 2017Q2

REPORT INFORMATION
  Report Type: Report from Study
  Country: US (occurrence: US)
  Receive Date: 20170526
  Receipt Date: 20170526
  Transmission Date: 20170830
  Serious: Yes (Hospitalization)
  Sender: FDA-Public Use
  Company Number: US-AMGEN-USASL2017071295

PATIENT
  Age: 68 Year
  Sex: Male
  Weight: 81 kg

DRUGS (2)
  1. KYPROLIS [Suspect]
     Active Substance: CARFILZOMIB
     Indication: ACUTE LYMPHOCYTIC LEUKAEMIA
     Dosage: UNK
     Route: 065
  2. BLINCYTO [Suspect]
     Active Substance: BLINATUMOMAB
     Indication: ACUTE LYMPHOCYTIC LEUKAEMIA
     Dosage: 09 MUG, QD
     Route: 042
     Dates: start: 20170501, end: 20170504

REACTIONS (8)
  - Back pain [Unknown]
  - Hepatomegaly [Unknown]
  - Abdominal pain upper [Unknown]
  - Blood bilirubin increased [Not Recovered/Not Resolved]
  - Chills [Unknown]
  - Transaminases increased [Unknown]
  - Musculoskeletal chest pain [Unknown]
  - Pyrexia [Unknown]

NARRATIVE: CASE EVENT DATE: 201705
